FAERS Safety Report 9465664 (Version 1)
Quarter: 2013Q3

REPORT INFORMATION
  Report Type: Spontaneous
  Country: AU (occurrence: AU)
  Receive Date: 20130820
  Receipt Date: 20130820
  Transmission Date: 20140515
  Serious: Yes (Other)
  Sender: FDA-Public Use
  Company Number: AU-PFIZER INC-2013239220

PATIENT
  Age: 74 Year
  Sex: Female
  Weight: 69 kg

DRUGS (14)
  1. AMIODARONE HCL [Suspect]
     Dosage: UNK
     Route: 065
  2. CEFAZOLIN [Suspect]
     Dosage: UNK
     Route: 065
     Dates: start: 20120410, end: 20120510
  3. ATORVASTATIN CALCIUM [Suspect]
     Dosage: 40 MG, UNK
     Dates: start: 20120409
  4. METOCLOPRAMIDE HCL [Suspect]
     Dosage: UNK
  5. PLAVIX [Suspect]
     Dosage: 75 MG, UNK
     Route: 065
  6. ASPIRIN [Suspect]
     Dosage: 100 MG, UNK
     Dates: start: 20120409
  7. COVERSYL [Concomitant]
  8. DIAMICRON MR [Concomitant]
  9. INSULIN GLARGINE [Concomitant]
  10. METFORMIN HYDROCHLORIDE [Concomitant]
  11. MINAX [Concomitant]
  12. NORVASC [Concomitant]
  13. PANAFCORTELONE [Concomitant]
  14. RANITIDINE [Concomitant]

REACTIONS (1)
  - Tubulointerstitial nephritis [Unknown]
